FAERS Safety Report 10067075 (Version 1)
Quarter: 2014Q2

REPORT INFORMATION
  Report Type: Spontaneous
  Country: ES (occurrence: ES)
  Receive Date: 20140409
  Receipt Date: 20140409
  Transmission Date: 20141212
  Serious: Yes (Death)
  Sender: FDA-Public Use
  Company Number: ES-ROCHE-1375168

PATIENT
  Sex: 0

DRUGS (5)
  1. PEG-INTERFERON ALFA 2A [Suspect]
     Indication: HEPATITIS C
     Route: 065
  2. PEG-INTERFERON ALFA 2A [Suspect]
     Indication: HEPATIC CIRRHOSIS
  3. RIBAVIRIN [Suspect]
     Indication: HEPATITIS C
     Route: 065
  4. RIBAVIRIN [Suspect]
     Indication: HEPATIC CIRRHOSIS
  5. TELAPREVIR [Suspect]
     Indication: HEPATITIS C
     Route: 065

REACTIONS (1)
  - Aplastic anaemia [Fatal]
